FAERS Safety Report 7542357-9 (Version None)
Quarter: 2011Q2

REPORT INFORMATION
  Report Type: 
  Country: None (occurrence: None)
  Receive Date: 20110524
  Receipt Date: 20110309
  Transmission Date: 20111010
  Serious: No
  Sender: FDA-Public Use
  Company Number: 027072

PATIENT
  Sex: Female
  Weight: 58.9676 kg

DRUGS (2)
  1. WELLBUTRIN [Concomitant]
  2. CIMZIA [Suspect]
     Indication: CROHN'S DISEASE
     Dosage: 400 MG X4 WEEKS SUBCUTANEOUS
     Route: 058
     Dates: start: 20100923

REACTIONS (5)
  - DRUG ADMINISTRATION ERROR [None]
  - ADVERSE REACTION [None]
  - INJECTION SITE PAIN [None]
  - ARTHRALGIA [None]
  - FATIGUE [None]
